FAERS Safety Report 23718281 (Version 1)
Quarter: 2024Q2

REPORT INFORMATION
  Report Type: Other
  Country: US (occurrence: None)
  Receive Date: 20240408
  Receipt Date: 20240408
  Transmission Date: 20240715
  Serious: Yes (Other)
  Sender: FDA-Public Use
  Company Number: US-ROCHE-3537786

PATIENT
  Age: 55 Year
  Sex: Female

DRUGS (6)
  1. OCRELIZUMAB [Suspect]
     Active Substance: OCRELIZUMAB
     Indication: Relapsing-remitting multiple sclerosis
     Route: 065
  2. SERTRALINE [Concomitant]
     Active Substance: SERTRALINE HYDROCHLORIDE
  3. TRAZODONE [Concomitant]
     Active Substance: TRAZODONE HYDROCHLORIDE
  4. ACETYLCYSTEINE [Concomitant]
     Active Substance: ACETYLCYSTEINE
  5. PREDNISONE [Concomitant]
     Active Substance: PREDNISONE
     Route: 048
  6. AZATHIOPRINE [Concomitant]
     Active Substance: AZATHIOPRINE

REACTIONS (1)
  - Autoimmune hepatitis [Recovering/Resolving]
